FAERS Safety Report 5799577-3 (Version None)
Quarter: 2008Q3

REPORT INFORMATION
  Report Type: 
  Country: None (occurrence: None)
  Receive Date: 20080703
  Receipt Date: 20080618
  Transmission Date: 20090109
  Serious: Yes (Hospitalization)
  Sender: FDA-Public Use
  Company Number: PHBS1992TW02508

PATIENT
  Age: 38 Year
  Sex: Female

DRUGS (2)
  1. LIORESAL [Suspect]
     Dosage: 112.5 MG/DAY
  2. LIORESAL [Suspect]
     Dosage: 500 MG, ONCE/SINGLE
     Route: 048

REACTIONS (15)
  - BRADYCARDIA [None]
  - COMA [None]
  - HEPATIC ENZYME INCREASED [None]
  - HYPERTENSION [None]
  - HYPOREFLEXIA [None]
  - HYPOTENSION [None]
  - HYPOTHERMIA [None]
  - HYPOTONIA [None]
  - LOSS OF CONSCIOUSNESS [None]
  - MYDRIASIS [None]
  - OVERDOSE [None]
  - PUPILLARY REFLEX IMPAIRED [None]
  - RESPIRATORY DISORDER [None]
  - SUICIDE ATTEMPT [None]
  - VENTRICULAR ARRHYTHMIA [None]
